FAERS Safety Report 15898696 (Version 1)
Quarter: 2019Q1

REPORT INFORMATION
  Report Type: Spontaneous
  Country: US (occurrence: US)
  Receive Date: 20190201
  Receipt Date: 20190201
  Transmission Date: 20190417
  Serious: Yes (Life-Threatening, Hospitalization, Other)
  Sender: FDA-Public Use
  Company Number: US-ACCORD-104289

PATIENT
  Age: 54 Year
  Sex: Male

DRUGS (3)
  1. MYCOPHENOLIC ACID. [Suspect]
     Active Substance: MYCOPHENOLIC ACID
     Indication: NEUROSARCOIDOSIS
     Dosage: 1000 MG ORALLY TWICE A DAY
     Route: 048
  2. METHOTREXATE. [Suspect]
     Active Substance: METHOTREXATE
     Indication: NEUROSARCOIDOSIS
  3. INFLIXIMAB [Suspect]
     Active Substance: INFLIXIMAB
     Indication: NEUROSARCOIDOSIS

REACTIONS (6)
  - Pneumonia pseudomonal [Unknown]
  - Acute kidney injury [Unknown]
  - Pneumocystis jirovecii infection [Unknown]
  - Pneumonia aspiration [Unknown]
  - Off label use [Unknown]
  - Histoplasmosis disseminated [Unknown]
